FAERS Safety Report 4937206-9 (Version None)
Quarter: 2006Q1

REPORT INFORMATION
  Report Type: 
  Country: None (occurrence: None)
  Receive Date: 20060309
  Receipt Date: 20060228
  Transmission Date: 20060701
  Serious: Yes (Death)
  Sender: FDA-Public Use
  Company Number: US-JNJFOC-20060204186

PATIENT
  Age: 2 Month

DRUGS (3)
  1. ACETAMINOPHEN [Suspect]
     Route: 054
  2. ACETAMINOPHEN [Suspect]
     Indication: DRUG USE FOR UNKNOWN INDICATION
     Dosage: GIVEN 16.5 TIMES THE RECOMMENDED DOSE, RECTALLY
     Route: 054
  3. PHENOBARBITONE [Concomitant]

REACTIONS (3)
  - HEPATIC FAILURE [None]
  - OVERDOSE [None]
  - RENAL FAILURE [None]
